FAERS Safety Report 7841974-6 (Version None)
Quarter: 2011Q4

REPORT INFORMATION
  Report Type: 
  Country: None (occurrence: None)
  Receive Date: 20111024
  Receipt Date: 20111024
  Transmission Date: 20120403
  Serious: Yes (Other)
  Sender: FDA-Public Use
  Company Number: None

PATIENT
  Age: 78 Year
  Sex: Male
  Weight: 99.7913 kg

DRUGS (1)
  1. SIMVASTATIN [Suspect]
     Indication: BLOOD CHOLESTEROL INCREASED
     Dosage: 10MG 1 - NIGHT MOUTH
     Route: 048
     Dates: start: 20110701

REACTIONS (4)
  - PROSTATIC DISORDER [None]
  - URINARY TRACT INFECTION [None]
  - URTICARIA [None]
  - RASH [None]
